FAERS Safety Report 10549075 (Version 3)
Quarter: 2014Q4

REPORT INFORMATION
  Report Type: Spontaneous
  Country: US (occurrence: US)
  Receive Date: 20141028
  Receipt Date: 20141219
  Transmission Date: 20150529
  Serious: Yes (Hospitalization)
  Sender: FDA-Public Use
  Company Number: US-BAYER-2014-157152

PATIENT
  Age: 28 Year
  Sex: Female
  Weight: 95.24 kg

DRUGS (1)
  1. MIRENA [Suspect]
     Active Substance: LEVONORGESTREL
     Dosage: 20 MCG/24HR, CONT
     Route: 015
     Dates: start: 20120901, end: 20121205

REACTIONS (6)
  - Injury [None]
  - Device dislocation [None]
  - Complication of device removal [None]
  - Uterine perforation [None]
  - Pain [None]
  - Device breakage [None]

NARRATIVE: CASE EVENT DATE: 20121205
